FAERS Safety Report 7322596-2 (Version None)
Quarter: 2011Q1

REPORT INFORMATION
  Report Type: 
  Country: None (occurrence: None)
  Receive Date: 20110301
  Receipt Date: 20091019
  Transmission Date: 20110831
  Serious: Yes (Other)
  Sender: FDA-Public Use
  Company Number: US-PFIZER INC-2009280078

PATIENT
  Sex: Female
  Weight: 62.585 kg

DRUGS (3)
  1. LIPITOR [Concomitant]
  2. METOPROLOL [Concomitant]
  3. GLUCOTROL XL [Suspect]
     Indication: DIABETES MELLITUS
     Dosage: 7.5 MG, 1X/DAY
     Route: 048

REACTIONS (2)
  - WRONG TECHNIQUE IN DRUG USAGE PROCESS [None]
  - BLOOD GLUCOSE DECREASED [None]
